FAERS Safety Report 6678118-2 (Version None)
Quarter: 2010Q2

REPORT INFORMATION
  Report Type: 
  Country: None (occurrence: None)
  Receive Date: 20100412
  Receipt Date: 20100402
  Transmission Date: 20101027
  Serious: Yes (Other)
  Sender: FDA-Public Use
  Company Number: FR-ABBOTT-10P-056-0634808-00

PATIENT
  Age: 45 Year
  Sex: Male

DRUGS (4)
  1. NORVIR [Suspect]
     Indication: HIV INFECTION
     Route: 048
     Dates: start: 20000524, end: 20090901
  2. ABACAVIR [Concomitant]
     Indication: HIV INFECTION
     Dates: start: 20000524
  3. NEVIRAPINE [Concomitant]
     Indication: HIV INFECTION
     Dates: start: 20010520
  4. FOSAMPRENAVIR [Concomitant]
     Indication: HIV INFECTION
     Dates: start: 20041130

REACTIONS (1)
  - LIPODYSTROPHY ACQUIRED [None]
